FAERS Safety Report 10342870 (Version 1)
Quarter: 2014Q3

REPORT INFORMATION
  Report Type: Spontaneous
  Country: US (occurrence: US)
  Receive Date: 20140725
  Receipt Date: 20140725
  Transmission Date: 20150326
  Serious: Yes (Life-Threatening, Hospitalization, Other)
  Sender: FDA-Public Use
  Company Number: US-ACTAVIS-2014-15882

PATIENT
  Age: 17 Month
  Sex: Male

DRUGS (1)
  1. BUPRENORPHINE HYDROCHLORIDE AND NALOXONE HYDROCHLORIDE DIHYDRATE [Suspect]
     Active Substance: BUPRENORPHINE\NALOXONE
     Indication: PRODUCT USED FOR UNKNOWN INDICATION
     Dosage: UNK, UNKNOWN
     Route: 065

REACTIONS (6)
  - Toxicity to various agents [Unknown]
  - Pupillary disorder [Unknown]
  - Accidental exposure to product by child [Unknown]
  - Somnolence [Unknown]
  - Accidental overdose [Unknown]
  - Hypokinesia [Unknown]
